FAERS Safety Report 5086845-6 (Version None)
Quarter: 2006Q3

REPORT INFORMATION
  Report Type: 
  Country: None (occurrence: None)
  Receive Date: 20060818
  Receipt Date: 20060731
  Transmission Date: 20061208
  Serious: Yes (Hospitalization)
  Sender: FDA-Public Use
  Company Number: US200606002512

PATIENT
  Age: 51 Year
  Sex: Female
  Weight: 96.6 kg

DRUGS (7)
  1. ZYPREXA [Suspect]
     Dosage: 2.5 MG, DAILY (1/D), ORAL
     Route: 048
     Dates: start: 19971208, end: 20060329
  2. GEODON [Concomitant]
  3. HALDOL [Concomitant]
  4. TRILAFON [Concomitant]
  5. DEPAKOTE [Concomitant]
  6. WELLBUTRIN [Concomitant]
  7. TOLAZAMIDE [Concomitant]

REACTIONS (4)
  - DIABETES MELLITUS NON-INSULIN-DEPENDENT [None]
  - HYPERTENSION [None]
  - LIBIDO DECREASED [None]
  - VISUAL ACUITY REDUCED [None]
